FAERS Safety Report 8096770-4 (Version None)
Quarter: 2012Q1

REPORT INFORMATION
  Report Type: 
  Country: None (occurrence: None)
  Receive Date: 20120129
  Receipt Date: 20111221
  Transmission Date: 20120608
  Serious: No
  Sender: FDA-Public Use
  Company Number: US-ABBOTT-11P-163-0862344-00

PATIENT
  Sex: Female
  Weight: 99.88 kg

DRUGS (10)
  1. CELEXA [Concomitant]
     Indication: DEPRESSION
  2. SIMVASTATIN [Concomitant]
     Indication: BLOOD CHOLESTEROL INCREASED
  3. NEURONTIN [Concomitant]
     Indication: NEURALGIA
  4. BACLOFEN [Concomitant]
     Indication: COLITIS MICROSCOPIC
  5. NEURONTIN [Concomitant]
     Indication: PAIN
  6. HUMIRA [Suspect]
     Indication: COLITIS MICROSCOPIC
     Route: 058
     Dates: start: 20110811, end: 20110811
  7. HUMIRA [Suspect]
     Route: 058
     Dates: start: 20110908
  8. HUMIRA [Suspect]
     Route: 058
     Dates: start: 20110825, end: 20110825
  9. CELEBREX [Concomitant]
     Indication: OSTEOARTHRITIS
  10. UNKNOWN MEDICATION [Concomitant]
     Indication: HYPERSENSITIVITY
     Dosage: AS REQUIRED

REACTIONS (17)
  - CONTUSION [None]
  - HEADACHE [None]
  - INJECTION SITE HAEMATOMA [None]
  - DIARRHOEA [None]
  - INJECTION SITE ERYTHEMA [None]
  - OFF LABEL USE [None]
  - INJECTION SITE PRURITUS [None]
  - ABDOMINAL PAIN UPPER [None]
  - ILL-DEFINED DISORDER [None]
  - OROPHARYNGEAL PAIN [None]
  - COLITIS MICROSCOPIC [None]
  - INCORRECT STORAGE OF DRUG [None]
  - SKIN EXFOLIATION [None]
  - NEURALGIA [None]
  - INJECTION SITE PAIN [None]
  - TINEA PEDIS [None]
  - ARTHRALGIA [None]
